FAERS Safety Report 9658055 (Version 1)
Quarter: 2013Q4

REPORT INFORMATION
  Report Type: Spontaneous
  Country: US (occurrence: US)
  Receive Date: 20131030
  Receipt Date: 20131030
  Transmission Date: 20140711
  Serious: No
  Sender: FDA-Public Use
  Company Number: US-009507513-1310USA011191

PATIENT
  Age: 62 Year
  Sex: Female

DRUGS (2)
  1. PROVENTIL [Suspect]
     Dosage: 2 PUFFS EVERY 4 HOURS AS NEEDED
     Route: 055
     Dates: start: 20131021
  2. LEVAQUIN [Concomitant]

REACTIONS (2)
  - Cough [Unknown]
  - Drug ineffective [Unknown]
